FAERS Safety Report 8980443 (Version 1)
Quarter: 2012Q4

REPORT INFORMATION
  Report Type: Report from Study
  Country: JP (occurrence: JP)
  Receive Date: 20121221
  Receipt Date: 20121221
  Transmission Date: 20130627
  Serious: Yes (Other)
  Sender: FDA-Public Use
  Company Number: JP-VERTEX PHARMACEUTICALS INC.-2012-026534

PATIENT
  Age: 50 Year
  Sex: Female

DRUGS (13)
  1. VX-950 (TELAPREVIR) [Suspect]
     Indication: CHRONIC HEPATITIS C
     Dosage: 1500 mg, qd
     Route: 048
     Dates: start: 20120215, end: 20120417
  2. VX-950 (TELAPREVIR) [Suspect]
     Dosage: 1000 mg, qd
     Route: 048
     Dates: start: 20120418, end: 20120424
  3. VX-950 (TELAPREVIR) [Suspect]
     Dosage: 1500 mg, qd
     Route: 048
     Dates: start: 20120425, end: 20120508
  4. REBETOL [Suspect]
     Indication: CHRONIC HEPATITIS C
     Dosage: 400 mg, qd
     Route: 048
     Dates: start: 20120215, end: 20120605
  5. REBETOL [Suspect]
     Dosage: 600 mg, qd
     Route: 048
     Dates: start: 20120606, end: 20120731
  6. PEGINTERFERON ALFA-2B [Suspect]
     Indication: CHRONIC HEPATITIS C
     Dosage: 1.5 ?g/kg, qw
     Route: 058
     Dates: start: 20120215, end: 20120725
  7. MAGNESIUM OXIDE [Concomitant]
     Dosage: 2 g, qd
     Route: 048
  8. FAMOTIDINE [Concomitant]
     Dosage: 20 mg, qd
     Route: 048
  9. PYDOXAL [Concomitant]
     Dosage: 2 DF, qd
     Route: 048
  10. HIBON [Concomitant]
     Dosage: 40 mg, qd
     Route: 048
  11. MYSLEE [Concomitant]
     Dosage: 10 mg, qd
     Route: 048
  12. REBAMIPIDE [Concomitant]
     Dosage: 100 mg, qd
     Route: 048
     Dates: start: 20120215
  13. ALLELOCK [Concomitant]
     Dosage: 5 mg, qd
     Route: 048
     Dates: start: 20120404

REACTIONS (1)
  - White blood cell count decreased [Not Recovered/Not Resolved]
